FAERS Safety Report 5163422-X (Version None)
Quarter: 2006Q4

REPORT INFORMATION
  Report Type: 
  Country: None (occurrence: None)
  Receive Date: 20061124
  Receipt Date: 20061115
  Transmission Date: 20070319
  Serious: Yes (Other)
  Sender: FDA-Public Use
  Company Number: US-2006-028319

PATIENT
  Age: 29 Year
  Sex: Female
  Weight: 71 kg

DRUGS (2)
  1. YAZ [Suspect]
     Indication: ORAL CONTRACEPTION
     Dosage: 1 TAB(S), 1X/DAY, ORAL
     Route: 048
     Dates: start: 20060701, end: 20060902
  2. VALTREX [Concomitant]

REACTIONS (10)
  - DYSGRAPHIA [None]
  - INSOMNIA [None]
  - MOOD SWINGS [None]
  - MUSCLE TIGHTNESS [None]
  - MUSCULAR WEAKNESS [None]
  - MYALGIA [None]
  - PAIN IN EXTREMITY [None]
  - PALPITATIONS [None]
  - THROMBOSIS [None]
  - WEIGHT DECREASED [None]
